FAERS Safety Report 19531495 (Version 1)
Quarter: 2021Q3

REPORT INFORMATION
  Report Type: Spontaneous
  Country: FR (occurrence: FR)
  Receive Date: 20210713
  Receipt Date: 20210713
  Transmission Date: 20211014
  Serious: Yes (Other)
  Sender: FDA-Public Use
  Company Number: FR-PFIZER INC-2021858390

PATIENT
  Age: 55 Year
  Sex: Male
  Weight: 62 kg

DRUGS (8)
  1. POSACONAZOLE [Suspect]
     Active Substance: POSACONAZOLE
     Indication: MUCORMYCOSIS
     Dosage: 100 MILLIGRAM, QD
     Route: 048
     Dates: start: 20210515, end: 20210519
  2. CEFAZOLINE [CEFAZOLIN] [Suspect]
     Active Substance: CEFAZOLIN
     Indication: SINUSITIS
     Dosage: 1 GRAM, Q8HR
     Route: 030
     Dates: start: 20210513
  3. AMBISOME [Suspect]
     Active Substance: AMPHOTERICIN B
     Indication: MUCORMYCOSIS
     Dosage: 650 MILLIGRAM, QD
     Route: 042
     Dates: start: 20210427, end: 20210514
  4. LAROXYL [Suspect]
     Active Substance: AMITRIPTYLINE HYDROCHLORIDE
     Dosage: UNK
     Route: 048
     Dates: start: 20210429, end: 20210506
  5. LOVENOX [Suspect]
     Active Substance: ENOXAPARIN SODIUM
     Indication: THROMBOSIS PROPHYLAXIS
     Dosage: 4000 INTERNATIONAL UNIT, QD
     Route: 058
     Dates: start: 20210428
  6. PIPERACILLIN/TAZOBACTAM [Suspect]
     Active Substance: PIPERACILLIN SODIUM\TAZOBACTAM SODIUM
     Indication: SINUSITIS
     Dosage: 4 GRAM, Q6HR
     Route: 042
     Dates: start: 20210427, end: 20210504
  7. LANSOPRAZOLE. [Suspect]
     Active Substance: LANSOPRAZOLE
     Dosage: 30 MILLIGRAM, QD
     Route: 048
     Dates: start: 20210419
  8. DAPTOMYCINE [Suspect]
     Active Substance: DAPTOMYCIN
     Indication: SINUSITIS
     Dosage: 500 MILLIGRAM, QD
     Route: 042
     Dates: start: 20210413, end: 20210416

REACTIONS (1)
  - Cholestasis [Recovered/Resolved]

NARRATIVE: CASE EVENT DATE: 20210519
